FAERS Safety Report 9322259 (Version 2)
Quarter: 2013Q2

REPORT INFORMATION
  Report Type: Report from Study
  Country: FR (occurrence: FR)
  Receive Date: 20130531
  Receipt Date: 20130624
  Transmission Date: 20140414
  Serious: Yes (Death, Life-Threatening, Hospitalization, Other)
  Sender: FDA-Public Use
  Company Number: FR-VIIV HEALTHCARE LIMITED-B0863475A

PATIENT
  Age: 54 Year
  Sex: Male

DRUGS (24)
  1. CELSENTRI [Suspect]
     Indication: HIV INFECTION
     Dosage: 150MG TWICE PER DAY
     Route: 048
     Dates: start: 20080226
  2. MORPHINE [Suspect]
  3. ISENTRESS [Concomitant]
     Indication: HIV INFECTION
     Route: 048
     Dates: start: 20080226
  4. NORVIR [Concomitant]
     Indication: HIV INFECTION
     Route: 048
     Dates: start: 20080226
  5. PREZISTA [Concomitant]
     Indication: HIV INFECTION
     Dosage: 600MG TWICE PER DAY
     Route: 048
     Dates: start: 20101214
  6. TRUVADA [Concomitant]
     Indication: HIV INFECTION
     Route: 048
     Dates: start: 20080226
  7. FUZEON [Concomitant]
     Indication: HIV INFECTION
  8. TIPRANAVIR [Concomitant]
     Indication: HIV INFECTION
  9. KIVEXA [Concomitant]
     Indication: HIV INFECTION
  10. TELZIR [Concomitant]
     Indication: HIV INFECTION
  11. VIREAD [Concomitant]
     Indication: HIV INFECTION
  12. EPIVIR [Concomitant]
     Indication: HIV INFECTION
  13. ZIAGEN [Concomitant]
     Indication: HIV INFECTION
  14. SUSTIVA [Concomitant]
     Indication: HIV INFECTION
  15. KALETRA [Concomitant]
     Indication: HIV INFECTION
  16. ALPROSTADIL [Concomitant]
     Indication: HYPOGONADISM
     Route: 042
     Dates: start: 20120207
  17. ATENOLOL [Concomitant]
     Indication: CORONARY ARTERY DISEASE
     Route: 048
     Dates: start: 20070303
  18. PRAVASTATINE [Concomitant]
     Indication: DYSLIPIDAEMIA
     Route: 048
     Dates: start: 2005
  19. COVERSYL [Concomitant]
     Indication: CORONARY ARTERY DISEASE
     Route: 048
     Dates: start: 20101214
  20. PLAVIX [Concomitant]
     Indication: THROMBOSIS PROPHYLAXIS
     Route: 048
     Dates: start: 20101214
  21. DARUNAVIR [Concomitant]
     Indication: HIV INFECTION
     Route: 048
     Dates: start: 201012
  22. TORENTAL [Concomitant]
     Indication: VASODILATION PROCEDURE
     Route: 048
     Dates: start: 20101216
  23. PRAXILENE [Concomitant]
     Indication: VASODILATION PROCEDURE
     Route: 048
     Dates: start: 20101216
  24. TESTOSTERONE [Concomitant]
     Indication: HYPOGONADISM
     Route: 048
     Dates: start: 20120207

REACTIONS (5)
  - Anal cancer recurrent [Fatal]
  - Gastrointestinal stoma necrosis [Recovered/Resolved]
  - Constipation [Recovered/Resolved]
  - Pseudomonal sepsis [Recovered/Resolved with Sequelae]
  - Respiratory disorder [Fatal]
